FAERS Safety Report 6165546-7 (Version None)
Quarter: 2009Q2

REPORT INFORMATION
  Report Type: 
  Country: None (occurrence: None)
  Receive Date: 20090423
  Receipt Date: 20090408
  Transmission Date: 20091009
  Serious: Yes (Other)
  Sender: FDA-Public Use
  Company Number: US-BRISTOL-MYERS SQUIBB COMPANY-14572275

PATIENT
  Age: 77 Year
  Sex: Female
  Weight: 57 kg

DRUGS (11)
  1. APIXABAN [Suspect]
     Indication: THROMBOSIS PROPHYLAXIS
     Route: 048
     Dates: start: 20090126, end: 20090331
  2. WARFARIN SODIUM [Suspect]
     Indication: THROMBOSIS PROPHYLAXIS
     Route: 048
     Dates: start: 20090126, end: 20090331
  3. PLACEBO [Suspect]
     Route: 048
     Dates: start: 20090126, end: 20090331
  4. COREG [Concomitant]
     Dates: end: 20090123
  5. BYSTOLIC [Concomitant]
     Dosage: 5 MG MORNING; 2.5 MG EVENING.
     Dates: start: 20090123
  6. LIPITOR [Concomitant]
  7. BENICAR HCT [Concomitant]
     Dosage: 1DF= 20/12.5MG
  8. MULTI-VITAMIN [Concomitant]
  9. HYDROXYCHLOROQUINE SULFATE [Concomitant]
  10. OXYBUTYNIN CHLORIDE [Concomitant]
  11. BACTRIM [Concomitant]
     Dates: start: 20090127

REACTIONS (19)
  - ALANINE AMINOTRANSFERASE INCREASED [None]
  - ANOREXIA [None]
  - ASPARTATE AMINOTRANSFERASE INCREASED [None]
  - ASTHENIA [None]
  - BLOOD ALKALINE PHOSPHATASE INCREASED [None]
  - BLOOD BILIRUBIN INCREASED [None]
  - CARDIAC FAILURE CONGESTIVE [None]
  - CARDIOMEGALY [None]
  - CARDIOMYOPATHY [None]
  - DYSPNOEA [None]
  - FALL [None]
  - FEELING COLD [None]
  - HEPATOJUGULAR REFLUX [None]
  - JAUNDICE [None]
  - LIVER FUNCTION TEST ABNORMAL [None]
  - MYOCARDITIS [None]
  - OEDEMA PERIPHERAL [None]
  - TACHYCARDIA [None]
  - WEIGHT INCREASED [None]
